FAERS Safety Report 17441787 (Version 5)
Quarter: 2020Q2

REPORT INFORMATION
  Report Type: Spontaneous
  Country: JP (occurrence: JP)
  Receive Date: 20200220
  Receipt Date: 20200529
  Transmission Date: 20200713
  Serious: Yes (Death, Hospitalization, Other)
  Sender: FDA-Public Use
  Company Number: JP-BRISTOL-MYERS SQUIBB COMPANY-BMS-2020-014182

PATIENT
  Age: 58 Year
  Sex: Male
  Weight: 72.5 kg

DRUGS (12)
  1. MYALONE [CLOBETASOL PROPIONATE] [Concomitant]
     Indication: RHEUMATOID ARTHRITIS
     Dosage: UNK, BID
     Dates: end: 20190130
  2. SATOSALBE [Concomitant]
     Active Substance: ZINC OXIDE
     Indication: RHEUMATOID ARTHRITIS
     Dosage: UNK, BID
     Dates: end: 20190130
  3. ARUSONA [Concomitant]
     Indication: ASTEATOSIS
     Route: 065
  4. ARUSONA [Concomitant]
     Indication: RHEUMATOID ARTHRITIS
     Dosage: UNK, BID
     Dates: end: 20190130
  5. ORENCIA [Suspect]
     Active Substance: ABATACEPT
     Indication: PRODUCT USED FOR UNKNOWN INDICATION
     Dosage: 125 MILLIGRAM, QWK
     Route: 058
     Dates: start: 20190202, end: 20190216
  6. CALONAL [Concomitant]
     Active Substance: ACETAMINOPHEN
     Indication: RHEUMATOID ARTHRITIS
     Dosage: 1000 MILLIGRAM, QID
     Route: 048
     Dates: end: 20190130
  7. HEPARINOID [Concomitant]
     Active Substance: CHONDROITIN SULFATE (BOVINE)
     Indication: ASTEATOSIS
     Route: 065
  8. ORENCIA [Suspect]
     Active Substance: ABATACEPT
     Indication: RHEUMATOID ARTHRITIS
     Dosage: 125 MILLIGRAM, QWK
     Route: 058
     Dates: start: 20180625, end: 20190118
  9. MYALONE [CLOBETASOL PROPIONATE] [Concomitant]
     Indication: ASTEATOSIS
     Route: 065
  10. SATOSALBE [Concomitant]
     Active Substance: ZINC OXIDE
     Indication: ASTEATOSIS
     Route: 065
  11. METHOTREXATE SODIUM. [Suspect]
     Active Substance: METHOTREXATE SODIUM
     Indication: RHEUMATOID ARTHRITIS
     Dosage: UNK MILLIGRAM, Q2WK
     Route: 048
     Dates: end: 20190208
  12. HEPARINOID [Concomitant]
     Active Substance: CHONDROITIN SULFATE (BOVINE)
     Indication: RHEUMATOID ARTHRITIS
     Dosage: UNK, BID
     Dates: end: 20190130

REACTIONS (1)
  - Acute hepatitis B [Fatal]

NARRATIVE: CASE EVENT DATE: 20190125
